FAERS Safety Report 6870302-8 (Version None)
Quarter: 2010Q3

REPORT INFORMATION
  Report Type: 
  Country: None (occurrence: None)
  Receive Date: 20100723
  Receipt Date: 20100719
  Transmission Date: 20110219
  Serious: No
  Sender: FDA-Public Use
  Company Number: US-BIOGENIDEC-2010BI024157

PATIENT
  Age: 40 Year
  Sex: Female

DRUGS (1)
  1. TYSABRI [Suspect]
     Indication: MULTIPLE SCLEROSIS
     Route: 042
     Dates: start: 20100202

REACTIONS (5)
  - ABASIA [None]
  - ARTHROPOD STING [None]
  - ASTHENIA [None]
  - INFECTED BITES [None]
  - MULTIPLE SCLEROSIS RELAPSE [None]
